FAERS Safety Report 7776270-9 (Version None)
Quarter: 2011Q3

REPORT INFORMATION
  Report Type: 
  Country: None (occurrence: None)
  Receive Date: 20110926
  Receipt Date: 20110912
  Transmission Date: 20111222
  Serious: Yes (Hospitalization)
  Sender: FDA-Public Use
  Company Number: GB-JNJFOC-20110904892

PATIENT
  Sex: Female

DRUGS (5)
  1. FLOXACILLIN SODIUM [Suspect]
     Indication: SEPSIS
     Route: 048
  2. CEFUROXIME [Suspect]
     Indication: SEPSIS
  3. ACETAMINOPHEN [Suspect]
  4. FLOXACILLIN SODIUM [Suspect]
  5. ACETAMINOPHEN [Suspect]
     Indication: JOINT ARTHROPLASTY

REACTIONS (2)
  - PYROGLUTAMATE INCREASED [None]
  - METABOLIC ACIDOSIS [None]
